FAERS Safety Report 5459820-7 (Version None)
Quarter: 2007Q3

REPORT INFORMATION
  Report Type: 
  Country: None (occurrence: None)
  Receive Date: 20070919
  Receipt Date: 20070910
  Transmission Date: 20080115
  Serious: Yes (Hospitalization)
  Sender: FDA-Public Use
  Company Number: PHEH2007US09947

PATIENT
  Age: 8 Year
  Sex: Male

DRUGS (33)
  1. GLEEVEC [Suspect]
     Indication: DIFFUSE LARGE B-CELL LYMPHOMA STAGE III
     Dosage: 300 MG, QD
     Route: 048
     Dates: start: 20070220, end: 20070427
  2. ASPARAGINASE [Concomitant]
     Indication: LYMPHOMA
     Dosage: 7400 IU, ONCE/SINGLE
     Route: 030
     Dates: start: 20070219
  3. ASPARAGINASE [Concomitant]
     Dosage: 7400 IU, ONCE/SINGLE
     Route: 030
     Dates: start: 20070221
  4. ASPARAGINASE [Concomitant]
     Dosage: 7400 IU, ONCE/SINGLE
     Route: 030
     Dates: start: 20070223
  5. ASPARAGINASE [Concomitant]
     Dosage: 7400 IU, ONCE/SINGLE
     Dates: start: 20070226
  6. ASPARAGINASE [Concomitant]
     Dosage: 7400 IU, ONCE/SINGLE
     Dates: start: 20070228
  7. ASPARAGINASE [Concomitant]
     Dosage: 7400 IU, ONCE/SINGLE
     Dates: start: 20070302
  8. ASPARAGINASE [Concomitant]
     Dosage: 7400 IU, ONCE/SINGLE
     Dates: start: 20070305
  9. ASPARAGINASE [Concomitant]
     Dosage: 7400 IU, ONCE/SINGLE
     Dates: start: 20070307
  10. ASPARAGINASE [Concomitant]
     Dosage: 7400 IU, ONCE/SINGLE
     Route: 030
     Dates: start: 20070309
  11. CYTARABINE [Concomitant]
     Indication: LYMPHOMA
     Dosage: UNK, ONCE/SINGLE
     Route: 037
     Dates: start: 20070215, end: 20070215
  12. HYDROCORTISONE [Concomitant]
  13. BACTRIM [Concomitant]
     Indication: ANTIFUNGAL PROPHYLAXIS
     Dosage: 1 DF, BID
     Route: 048
     Dates: start: 20070201
  14. PEPCID [Concomitant]
     Indication: GASTRITIS PROPHYLAXIS
     Dosage: 20 MG, BID
     Route: 048
     Dates: start: 20070201
  15. DAUNORUBICIN HCL [Concomitant]
     Indication: LYMPHOMA
     Dosage: 37 MG, ONCE/SINGLE
     Route: 042
     Dates: start: 20070322
  16. DAUNORUBICIN HCL [Concomitant]
     Dosage: 37 MG, ONCE/SINGLE
     Route: 042
     Dates: start: 20070222
  17. DAUNORUBICIN HCL [Concomitant]
     Dosage: 37 MG, ONCE/SINGLE
     Route: 042
     Dates: start: 20070302
  18. DAUNORUBICIN HCL [Concomitant]
     Dosage: 37 MG, ONCE/SINGLE
     Route: 042
     Dates: start: 20070309
  19. METHOTREXATE [Concomitant]
     Indication: LYMPHOMA
     Dosage: UNK, ONCE/SINGLE
     Route: 037
     Dates: start: 20070222
  20. METHOTREXATE [Concomitant]
     Dosage: UNK, ONCE/SINGLE
     Route: 037
     Dates: start: 20070302
  21. METHOTREXATE [Concomitant]
     Dosage: UNK, ONCE/SINGLE
     Route: 037
     Dates: start: 20070309
  22. METHOTREXATE [Concomitant]
     Dosage: UNK, ONCE/SINGLE
     Route: 037
     Dates: start: 20070316
  23. METHOTREXATE [Concomitant]
     Dosage: UNK, ONCE/SINGLE
     Route: 037
     Dates: start: 20070322
  24. METHOTREXATE [Concomitant]
     Dosage: UNK, ONCE/SINGLE
     Route: 037
     Dates: start: 20070505
  25. CYTARABINE [Concomitant]
     Indication: LYMPHOMA
     Dosage: 95 MG, ON 4 DAYS, OFF 3 DAY
     Route: 042
     Dates: start: 20070322, end: 20070414
  26. CYTOXAN [Concomitant]
     Indication: LYMPHOMA
     Dosage: 1270 MG, ONCE/SINGLE
     Route: 042
     Dates: start: 20070322
  27. CYTOXAN [Concomitant]
     Dosage: 1270 MG, ONCE/SINGLE
     Route: 042
     Dates: start: 20070405
  28. VINCRISTINE [Concomitant]
     Indication: LYMPHOMA
     Dosage: 1.9 MG, ONCE/SINGLE
     Route: 042
     Dates: start: 20070222
  29. VINCRISTINE [Concomitant]
     Dosage: 1.9 MG, ONCE/SINGLE
     Route: 042
     Dates: start: 20070302
  30. VINCRISTINE [Concomitant]
     Dosage: 1.9 MG, ONCE/SINGLE
     Route: 042
     Dates: start: 20070309
  31. VINCRISTINE [Concomitant]
     Dosage: 19 MG, ONCE/SINGLE
     Route: 042
     Dates: start: 20070316
  32. VINCRISTINE [Concomitant]
     Dosage: 1.9 MG, ONCE/SINGLE
     Dates: start: 20070216
  33. 6-MP [Concomitant]
     Indication: B-CELL LYMPHOMA STAGE III
     Dosage: 75 MG, QHS
     Route: 048

REACTIONS (5)
  - BLINDNESS UNILATERAL [None]
  - EYE PAIN [None]
  - OPTIC NEURITIS [None]
  - PAPILLOEDEMA [None]
  - RETINAL VEIN THROMBOSIS [None]
